FAERS Safety Report 9217285 (Version 2)
Quarter: 2013Q2

REPORT INFORMATION
  Report Type: Report from Study
  Country: US (occurrence: US)
  Receive Date: 20130408
  Receipt Date: 20130603
  Transmission Date: 20140414
  Serious: Yes (Other)
  Sender: FDA-Public Use
  Company Number: US-ROCHE-1067815

PATIENT
  Age: 41 Year
  Sex: Female
  Weight: 89.89 kg

DRUGS (12)
  1. OMALIZUMAB [Suspect]
     Indication: ASTHMA
     Route: 058
     Dates: start: 20120214, end: 20120312
  2. OMALIZUMAB [Suspect]
     Route: 058
  3. OMALIZUMAB [Suspect]
     Route: 065
     Dates: start: 201206
  4. OMALIZUMAB [Suspect]
     Route: 065
  5. SINGULAIR [Concomitant]
     Indication: HYPERSENSITIVITY
     Route: 065
  6. COMBIVENT [Concomitant]
     Indication: ASTHMA
     Route: 065
  7. ALBUTEROL [Concomitant]
     Indication: ASTHMA
     Route: 065
  8. SYMBICORT [Concomitant]
     Indication: ASTHMA
     Route: 065
  9. OMEPRAZOLE [Concomitant]
  10. NORVASC [Concomitant]
  11. TRIAMTERENE W HCTZ [Concomitant]
  12. MAXIDE (UNK INGREDIENTS) [Concomitant]

REACTIONS (7)
  - Chills [Recovered/Resolved]
  - Chest discomfort [Recovered/Resolved]
  - Dyspnoea [Recovered/Resolved]
  - Pruritus [Recovered/Resolved]
  - Rash [Recovered/Resolved]
  - Dizziness [Unknown]
  - Rash [Unknown]
